FAERS Safety Report 4389649-2 (Version None)
Quarter: 2004Q2

REPORT INFORMATION
  Report Type: 
  Country: None (occurrence: None)
  Receive Date: 20040629
  Receipt Date: 20040415
  Transmission Date: 20050107
  Serious: Yes (Hospitalization)
  Sender: FDA-Public Use
  Company Number: US-JNJFOC-20040403586

PATIENT
  Age: 55 Year
  Sex: Female

DRUGS (9)
  1. DURAGESIC [Suspect]
     Indication: PAIN
     Dosage: SEE IMAGE TRANSDERMAL
     Route: 062
     Dates: start: 20040313, end: 20040314
  2. DURAGESIC [Suspect]
     Indication: PAIN
     Dosage: SEE IMAGE TRANSDERMAL
     Route: 062
     Dates: start: 20040314, end: 20040315
  3. DURAGESIC [Suspect]
     Indication: PAIN
     Dosage: SEE IMAGE TRANSDERMAL
     Route: 062
     Dates: start: 20040315, end: 20040317
  4. FENTANYL [Suspect]
     Indication: POST PROCEDURAL PAIN
     Dosage: INTRAVENOUS
     Route: 042
     Dates: start: 20040312
  5. PREMARIN [Concomitant]
  6. TYLENOL [Concomitant]
  7. AMBIEN [Concomitant]
  8. ZYRTEC [Concomitant]
  9. VANCOMYCIN (VANCOMYCIN) SUSPENSION [Concomitant]

REACTIONS (8)
  - COLD SWEAT [None]
  - CONFUSIONAL STATE [None]
  - DYSPNOEA [None]
  - HEART RATE INCREASED [None]
  - NAUSEA [None]
  - PAIN [None]
  - PYREXIA [None]
  - RASH [None]
